FAERS Safety Report 7372053-2 (Version None)
Quarter: 2011Q1

REPORT INFORMATION
  Report Type: 
  Country: None (occurrence: None)
  Receive Date: 20110324
  Receipt Date: 20110310
  Transmission Date: 20110831
  Serious: Yes (Hospitalization, Other)
  Sender: FDA-Public Use
  Company Number: PHHY2011US19729

PATIENT
  Sex: Female

DRUGS (2)
  1. EXJADE [Suspect]
     Dosage: 1125 MG, QD
     Route: 048
  2. TPN ELECTROLYTES IN PLASTIC CONTAINER [Concomitant]
     Dosage: UNK

REACTIONS (3)
  - INTESTINAL OBSTRUCTION [None]
  - NEOPLASM MALIGNANT [None]
  - FISTULA [None]
